FAERS Safety Report 8463205-9 (Version None)
Quarter: 2012Q2

REPORT INFORMATION
  Report Type: 
  Country: None (occurrence: None)
  Receive Date: 20120625
  Receipt Date: 20120619
  Transmission Date: 20120825
  Serious: Yes (Hospitalization)
  Sender: FDA-Public Use
  Company Number: US-PFIZER INC-2012148189

PATIENT
  Sex: Male
  Weight: 104 kg

DRUGS (2)
  1. LIPITOR [Suspect]
     Dosage: 40 MG, DAILY
  2. LYRICA [Suspect]
     Indication: NEURALGIA
     Dosage: UNK
     Dates: start: 20120101, end: 20120616

REACTIONS (7)
  - LIP SWELLING [None]
  - CHAPPED LIPS [None]
  - ORAL HERPES [None]
  - WEIGHT INCREASED [None]
  - DIZZINESS [None]
  - FALL [None]
  - OEDEMA PERIPHERAL [None]
